FAERS Safety Report 19822877 (Version 1)
Quarter: 2021Q3

REPORT INFORMATION
  Report Type: Spontaneous
  Country: US (occurrence: US)
  Receive Date: 20210913
  Receipt Date: 20210913
  Transmission Date: 20211014
  Serious: Yes (Life-Threatening, Hospitalization, Other)
  Sender: FDA-Public Use
  Company Number: US-DRREDDYS-SPO/USA/21/0139843

PATIENT
  Age: 21 Year
  Sex: Male

DRUGS (7)
  1. FENTANYL CITRATE. [Suspect]
     Active Substance: FENTANYL CITRATE
     Indication: SEDATION
  2. LEVETIRACETAM. [Concomitant]
     Active Substance: LEVETIRACETAM
     Indication: SEDATION
  3. FLUOXETINE [Concomitant]
     Active Substance: FLUOXETINE HYDROCHLORIDE
     Indication: BIPOLAR DISORDER
  4. LITHIUM. [Concomitant]
     Active Substance: LITHIUM
     Indication: BIPOLAR DISORDER
  5. MIDAZOLAM. [Concomitant]
     Active Substance: MIDAZOLAM
     Indication: VENTRICULAR DYSSYNCHRONY
  6. PROPOFOL INJECTABLE EMULSION [Concomitant]
     Active Substance: PROPOFOL
     Indication: SEDATION
  7. MIDAZOLAM. [Concomitant]
     Active Substance: MIDAZOLAM
     Indication: AGITATION

REACTIONS (1)
  - Serotonin syndrome [Recovered/Resolved]
